FAERS Safety Report 6005337-0 (Version None)
Quarter: 2008Q4

REPORT INFORMATION
  Report Type: 
  Country: None (occurrence: None)
  Receive Date: 20081215
  Receipt Date: 20081202
  Transmission Date: 20090506
  Serious: Yes (Hospitalization)
  Sender: FDA-Public Use
  Company Number: 1-17022349

PATIENT
  Age: 50 Year
  Sex: Female

DRUGS (11)
  1. METFORMIN HCL [Suspect]
     Indication: TYPE 2 DIABETES MELLITUS
     Dosage: ORAL
     Route: 048
  2. LEVOTHYROXINE SODIUM [Concomitant]
  3. ACETAMINEPHEN/CODEINE [Concomitant]
  4. ASPIRIN [Concomitant]
  5. SIMVASTATIN [Concomitant]
  6. OMEPRAZOLE [Concomitant]
  7. PREGABALIN [Concomitant]
  8. ZANAFLEX [Concomitant]
  9. CANDESARTAN [Concomitant]
  10. HYDROCHLOROTHIAZIDE [Concomitant]
  11. ARIPRAZOLE [Concomitant]

REACTIONS (4)
  - ASTHENIA [None]
  - HAEMODIALYSIS [None]
  - LACTIC ACIDOSIS [None]
  - PANCREATITIS [None]
